FAERS Safety Report 9937041 (Version 1)
Quarter: 2014Q1

REPORT INFORMATION
  Report Type: Spontaneous
  Country: US (occurrence: None)
  Receive Date: 20140122
  Receipt Date: 20140122
  Transmission Date: 20141002
  Serious: No
  Sender: FDA-Public Use
  Company Number: AP356-00242-SPO-US

PATIENT
  Age: 42 Year
  Sex: Male
  Weight: 91 kg

DRUGS (5)
  1. BELVIQ (LORCASERIN HYDROCHLORIDE) [Suspect]
     Indication: WEIGHT CONTROL
     Route: 048
     Dates: start: 201310, end: 201311
  2. VICTOZA (LIRAGLUTIDE) [Concomitant]
  3. METFORMIN (METFORMIN) [Concomitant]
  4. PIOGLITAZONE (PIOGLITAZONE) [Concomitant]
  5. CRESTOR (ROSUVASTATIN CALCIUM) [Concomitant]

REACTIONS (1)
  - Nausea [None]
